FAERS Safety Report 21273436 (Version 1)
Quarter: 2022Q3

REPORT INFORMATION
  Report Type: Report from Study
  Country: CR (occurrence: CR)
  Receive Date: 20220831
  Receipt Date: 20220831
  Transmission Date: 20221026
  Serious: Yes (Other)
  Sender: FDA-Public Use
  Company Number: CR-NOVARTISPH-NVSC2022CR195663

PATIENT
  Sex: Female

DRUGS (1)
  1. EXFORGE HCT [Suspect]
     Active Substance: AMLODIPINE BESYLATE\HYDROCHLOROTHIAZIDE\VALSARTAN
     Indication: Hypertension
     Dosage: UNK UNK, QD 10/25/320  MG, ALSO REPORTED AS 320 MG
     Route: 048
     Dates: start: 2015

REACTIONS (7)
  - Foot fracture [Not Recovered/Not Resolved]
  - Ligament injury [Not Recovered/Not Resolved]
  - Fall [Not Recovered/Not Resolved]
  - Gait disturbance [Unknown]
  - Feeling hot [Unknown]
  - Grip strength decreased [Unknown]
  - Pain [Unknown]

NARRATIVE: CASE EVENT DATE: 20190101
